FAERS Safety Report 18767254 (Version 1)
Quarter: 2021Q1

REPORT INFORMATION
  Report Type: Spontaneous
  Country: US (occurrence: US)
  Receive Date: 20210120
  Receipt Date: 20210120
  Transmission Date: 20210419
  Serious: No
  Sender: FDA-Public Use
  Company Number: None

PATIENT
  Age: 38 Year

DRUGS (2)
  1. FILIPINO FACE CREAM [Suspect]
     Active Substance: COSMETICS
     Indication: SKIN HYPERPIGMENTATION
     Route: 061
  2. CRYSTAL NIGHT LOTION [Suspect]
     Active Substance: COSMETICS

REACTIONS (2)
  - Dermatitis [None]
  - Product formulation issue [None]

NARRATIVE: CASE EVENT DATE: 20200106
